FAERS Safety Report 8937620 (Version 1)
Quarter: 2012Q4

REPORT INFORMATION
  Report Type: 
  Country: GR (occurrence: GR)
  Receive Date: 20121130
  Receipt Date: 20121130
  Transmission Date: 20130627
  Serious: Yes (Other)
  Sender: FDA-Public Use
  Company Number: GR-B.I. PHARMACEUTICALS,INC./RIDGEFIELD-2012-BI-01324GB

PATIENT
  Age: 70 Year
  Sex: Male
  Weight: 85 kg

DRUGS (4)
  1. SPIRIVA RESPIMAT [Suspect]
     Indication: CHRONIC OBSTRUCTIVE PULMONARY DISEASE
     Dosage: 1 anz
     Route: 055
     Dates: start: 20111215, end: 20121107
  2. SYMBICORT [Suspect]
     Indication: CHRONIC OBSTRUCTIVE PULMONARY DISEASE
     Dosage: 2 anz
     Route: 055
     Dates: start: 20050825, end: 20121107
  3. ATROVENT [Concomitant]
     Indication: CHRONIC OBSTRUCTIVE PULMONARY DISEASE
     Dosage: 3 anz
     Route: 055
     Dates: start: 20071109
  4. CRESTOR [Concomitant]
     Indication: HYPERCHOLESTEROLAEMIA
     Dosage: 10 mg
     Route: 048
     Dates: start: 20080421

REACTIONS (1)
  - Contusion [Unknown]
